FAERS Safety Report 24809998 (Version 2)
Quarter: 2025Q1

REPORT INFORMATION
  Report Type: Spontaneous
  Country: IT (occurrence: IT)
  Receive Date: 20250106
  Receipt Date: 20250115
  Transmission Date: 20250409
  Serious: Yes (Other)
  Sender: MYLAN
  Company Number: IT-009507513-1812ITA007448

PATIENT

DRUGS (2)
  1. NEVIRAPINE [Suspect]
     Active Substance: NEVIRAPINE
     Indication: HIV infection
     Route: 065
  2. RALTEGRAVIR POTASSIUM [Suspect]
     Active Substance: RALTEGRAVIR POTASSIUM
     Indication: HIV infection
     Route: 048

REACTIONS (3)
  - Pathogen resistance [Unknown]
  - Drug resistance [Unknown]
  - Virologic failure [Unknown]
